FAERS Safety Report 8033930-2 (Version None)
Quarter: 2012Q1

REPORT INFORMATION
  Report Type: 
  Country: None (occurrence: None)
  Receive Date: 20120110
  Receipt Date: 20120104
  Transmission Date: 20120608
  Serious: Yes (Hospitalization)
  Sender: FDA-Public Use
  Company Number: FR-PFIZER INC-K201101173

PATIENT
  Age: 87 Year
  Sex: Female

DRUGS (12)
  1. VALPROIC ACID [Concomitant]
     Indication: BIPOLAR DISORDER
     Dosage: UNK
  2. RAMIPRIL [Suspect]
     Dosage: 0.625 MG, 1X/DAY
     Route: 048
  3. ACETYLSALICYLATE LYSINE [Concomitant]
     Dosage: UNK
  4. RAMIPRIL [Suspect]
     Dosage: 1.25 MG, 1X/DAY
     Route: 048
  5. ROSUVASTATIN [Concomitant]
     Indication: HYPERCHOLESTEROLAEMIA
     Dosage: UNK
  6. CLONAZEPAM [Suspect]
     Dosage: UNK MG/ML, UNK
     Route: 048
     Dates: end: 20110901
  7. NITROGLYCERIN [Suspect]
     Indication: ANGINA PECTORIS
     Dosage: 5 MG, 1X/DAY
     Route: 062
     Dates: end: 20110901
  8. GAVISCON [Concomitant]
     Dosage: UNK
  9. PANTOPRAZOLE [Concomitant]
     Dosage: UNK
  10. METOPROLOL TARTRATE [Suspect]
     Indication: HYPERTENSION
     Dosage: 50 MG, 1X/DAY
     Route: 048
  11. CITALOPRAM [Concomitant]
     Dosage: UNK
     Route: 048
  12. PARACETAMOL [Concomitant]
     Indication: PAIN
     Dosage: UNK

REACTIONS (10)
  - RALES [None]
  - ORTHOSTATIC HYPOTENSION [None]
  - PERIORBITAL HAEMATOMA [None]
  - AREFLEXIA [None]
  - EXTENSOR PLANTAR RESPONSE [None]
  - HAEMATOMA [None]
  - CEREBRAL SMALL VESSEL ISCHAEMIC DISEASE [None]
  - FALL [None]
  - COUGH [None]
  - DISORIENTATION [None]
